FAERS Safety Report 4975745-5 (Version None)
Quarter: 2006Q2

REPORT INFORMATION
  Report Type: 
  Country: None (occurrence: None)
  Receive Date: 20060418
  Receipt Date: 20060406
  Transmission Date: 20061013
  Serious: Yes (Other)
  Sender: FDA-Public Use
  Company Number: SE-NOVOPROD-252289

PATIENT
  Sex: Male

DRUGS (3)
  1. INSULATARD NPH HUMAN [Suspect]
     Indication: DIABETES MELLITUS
  2. ACTRAPID PENSET [Suspect]
     Indication: DIABETES MELLITUS
  3. RAMIPRIL [Suspect]

REACTIONS (1)
  - OEDEMA [None]
